FAERS Safety Report 7007393-X (Version None)
Quarter: 2010Q3

REPORT INFORMATION
  Report Type: 
  Country: None (occurrence: None)
  Receive Date: 20100922
  Receipt Date: 20100908
  Transmission Date: 20110219
  Serious: Yes (Hospitalization, Other)
  Sender: FDA-Public Use
  Company Number: JP-PFIZER INC-2010111559

PATIENT
  Age: 75 Year
  Sex: Female

DRUGS (8)
  1. SEIBULE [Suspect]
     Indication: TYPE 2 DIABETES MELLITUS
     Dosage: 100 MG, UNK
     Route: 048
     Dates: start: 20090528, end: 20100819
  2. LANTUS [Concomitant]
     Indication: TYPE 2 DIABETES MELLITUS
     Dosage: 14 IU, UNK
     Route: 058
     Dates: start: 20090320, end: 20100819
  3. KINEDAK [Concomitant]
     Indication: DIABETIC NEUROPATHY
     Dosage: 150 MG, UNK
     Route: 048
     Dates: start: 20100517, end: 20100819
  4. SELBEX [Concomitant]
     Dosage: 100 MG, UNK
     Route: 048
     Dates: start: 20100331, end: 20100819
  5. CELECOXIB [Concomitant]
     Indication: OSTEOARTHRITIS
     Dosage: 200 MG, UNK
     Route: 048
     Dates: start: 20100331, end: 20100819
  6. VESICARE [Concomitant]
     Indication: DYSURIA
     Dosage: 5 MG, UNK
     Route: 048
     Dates: end: 20100819
  7. LIPIDIL [Concomitant]
     Indication: HYPERLIPIDAEMIA
     Dosage: 100 MG, UNK
     Route: 048
     Dates: end: 20100819
  8. PARIET [Concomitant]
     Dosage: 10 MG, UNK
     Route: 048
     Dates: end: 20100819

REACTIONS (4)
  - ABDOMINAL PAIN UPPER [None]
  - CHOLECYSTITIS [None]
  - PNEUMATOSIS INTESTINALIS [None]
  - RENAL CYST [None]
